FAERS Safety Report 6611488-X (Version None)
Quarter: 2010Q1

REPORT INFORMATION
  Report Type: 
  Country: None (occurrence: None)
  Receive Date: 20100222
  Receipt Date: 20091222
  Transmission Date: 20100710
  Serious: Yes (Hospitalization)
  Sender: FDA-Public Use
  Company Number: DSA_42241_2009

PATIENT
  Age: 87 Year
  Sex: Female

DRUGS (6)
  1. ENALAPRIL MALEATE [Suspect]
     Indication: HYPERTENSION
     Dosage: 10 MG BID ORAL, 10 MG QD ORAL, 5 MG QD ORAL
     Route: 048
     Dates: start: 20021205, end: 20040708
  2. ENALAPRIL MALEATE [Suspect]
     Indication: HYPERTENSION
     Dosage: 10 MG BID ORAL, 10 MG QD ORAL, 5 MG QD ORAL
     Route: 048
     Dates: start: 20040709, end: 20070304
  3. ENALAPRIL MALEATE [Suspect]
     Indication: HYPERTENSION
     Dosage: 10 MG BID ORAL, 10 MG QD ORAL, 5 MG QD ORAL
     Route: 048
     Dates: start: 20070305, end: 20090623
  4. HYDROCHLOROTHIAZIDE [Concomitant]
  5. LEVOTHYROXINE SODIUM [Concomitant]
  6. VERAPAMIL HCL [Concomitant]

REACTIONS (4)
  - ANGIOEDEMA [None]
  - DYSPHAGIA [None]
  - PHARYNGEAL ERYTHEMA [None]
  - WHITE BLOOD CELL COUNT INCREASED [None]
